FAERS Safety Report 7829823 (Version 2)
Quarter: 2018Q1

REPORT INFORMATION
  Report Type: Spontaneous
  Country: US (occurrence: US)
  Receive Date: 20110226
  Receipt Date: 20180116
  Transmission Date: 20180509
  Serious: No
  Sender: FDA-Public Use
  Company Number: US-ALLERGAN-200219017

PATIENT
  Age: 34 Year
  Sex: Female
  Weight: 52.15 kg

DRUGS (3)
  1. BOTOX [Suspect]
     Active Substance: ONABOTULINUMTOXINA
     Indication: MUSCLE SPASMS
     Dosage: 15 UNITS, SINGLE
     Route: 030
     Dates: start: 20021216, end: 20021216
  2. KLONOPIN [Concomitant]
     Active Substance: CLONAZEPAM
     Indication: ANXIETY
     Route: 065
  3. BOTOX [Suspect]
     Active Substance: ONABOTULINUMTOXINA
     Indication: FACIAL SPASM
     Dosage: 8 UNITS, SINGLE
     Route: 030
     Dates: start: 20020918, end: 20020918

REACTIONS (7)
  - Muscular weakness [Unknown]
  - Eye pain [Not Recovered/Not Resolved]
  - Ocular hyperaemia [Not Recovered/Not Resolved]
  - Visual impairment [Not Recovered/Not Resolved]
  - Eyelid ptosis [Not Recovered/Not Resolved]
  - Ocular discomfort [Not Recovered/Not Resolved]
  - Lagophthalmos [Recovered/Resolved]

NARRATIVE: CASE EVENT DATE: 20020918
